FAERS Safety Report 11727825 (Version 1)
Quarter: 2015Q4

REPORT INFORMATION
  Report Type: Spontaneous
  Country: US (occurrence: US)
  Receive Date: 20151112
  Receipt Date: 20151112
  Transmission Date: 20160304
  Serious: Yes (Death, Hospitalization)
  Sender: FDA-Public Use
  Company Number: US-UNITED THERAPEUTICS-UNT-2015-011089

PATIENT
  Age: 67 Year
  Sex: Female
  Weight: 67.12 kg

DRUGS (6)
  1. ORENITRAM [Suspect]
     Active Substance: TREPROSTINIL
     Dosage: 1.875 MG, TID
     Route: 048
  2. REMODULIN [Suspect]
     Active Substance: TREPROSTINIL
     Indication: PULMONARY HYPERTENSION
     Dosage: 0.090 ?G/KG/MIN, CONTINUING
     Route: 041
     Dates: start: 20140512
  3. LETAIRIS [Concomitant]
     Active Substance: AMBRISENTAN
     Indication: PRODUCT USED FOR UNKNOWN INDICATION
  4. ORENITRAM [Suspect]
     Active Substance: TREPROSTINIL
     Indication: PULMONARY HYPERTENSION
     Dosage: 0.375 MG, TID
     Route: 048
     Dates: start: 20150821
  5. ORENITRAM [Suspect]
     Active Substance: TREPROSTINIL
     Dosage: 1.875 MG, TID
     Route: 048
  6. ORENITRAM [Suspect]
     Active Substance: TREPROSTINIL
     Dosage: 1.875 MG, Q8H
     Route: 048

REACTIONS (6)
  - Dyspepsia [Unknown]
  - Pain in jaw [Unknown]
  - Dizziness [Unknown]
  - Nausea [Unknown]
  - Lung disorder [Unknown]
  - Death [Fatal]

NARRATIVE: CASE EVENT DATE: 201508
